APPROVED DRUG PRODUCT: CANASA
Active Ingredient: MESALAMINE
Strength: 500MG
Dosage Form/Route: SUPPOSITORY;RECTAL
Application: N021252 | Product #001
Applicant: ABBVIE INC
Approved: Jan 5, 2001 | RLD: No | RS: No | Type: DISCN